FAERS Safety Report 24115826 (Version 2)
Quarter: 2024Q3

REPORT INFORMATION
  Report Type: Spontaneous
  Country: BD (occurrence: BD)
  Receive Date: 20240721
  Receipt Date: 20240724
  Transmission Date: 20241017
  Serious: Yes (Death)
  Sender: SANDOZ
  Company Number: BD-002147023-NVSC2024BD146516

PATIENT
  Sex: Female

DRUGS (2)
  1. ACLASTA [Suspect]
     Active Substance: ZOLEDRONIC ACID
     Dosage: 5 MG/100 ML, ONCE A YEAR
     Route: 042
  2. ACLASTA [Suspect]
     Active Substance: ZOLEDRONIC ACID
     Indication: Product used for unknown indication
     Dosage: 5/100 -1S
     Route: 065

REACTIONS (1)
  - Brain neoplasm [Fatal]
